FAERS Safety Report 19611465 (Version 3)
Quarter: 2021Q3

REPORT INFORMATION
  Report Type: Report from Study
  Country: US (occurrence: US)
  Receive Date: 20210726
  Receipt Date: 20210922
  Transmission Date: 20211014
  Serious: Yes (Hospitalization, Other)
  Sender: FDA-Public Use
  Company Number: US-TAKEDA-US201619433

PATIENT
  Age: 56 Year
  Sex: Male
  Weight: 53 kg

DRUGS (10)
  1. TEDUGLUTIDE [Suspect]
     Active Substance: TEDUGLUTIDE
     Indication: SHORT-BOWEL SYNDROME
     Dosage: 2.4 UNKNOWN, 1X/DAY:QD
     Route: 058
     Dates: start: 20140626, end: 20140901
  2. TEDUGLUTIDE [Suspect]
     Active Substance: TEDUGLUTIDE
     Indication: SHORT-BOWEL SYNDROME
     Dosage: 2.4 UNKNOWN, 1X/DAY:QD
     Route: 058
     Dates: start: 20140626, end: 20140901
  3. TEDUGLUTIDE [Suspect]
     Active Substance: TEDUGLUTIDE
     Indication: SHORT-BOWEL SYNDROME
     Dosage: 2.4 UNKNOWN, 1X/DAY:QD
     Route: 058
     Dates: start: 20140626, end: 20140901
  4. LEVOTHYROXINE. [Concomitant]
     Active Substance: LEVOTHYROXINE
     Indication: HYPOTHYROIDISM
     Dosage: 125.0 ?G, 1X/DAY:QD
     Route: 048
     Dates: start: 20150102
  5. MULTIVITAMIN [Concomitant]
     Active Substance: VITAMINS
     Indication: SHORT-BOWEL SYNDROME
     Dosage: 2 DOSAGE FORM, QD
     Route: 048
  6. CYANOCOBALAMIN. [Concomitant]
     Active Substance: CYANOCOBALAMIN
     Indication: SUPPLEMENTATION THERAPY
     Dosage: 1000.0 ?G, OTHER
     Route: 030
     Dates: start: 20150102
  7. SANDOSTATIN LAR DEPOT [Concomitant]
     Active Substance: OCTREOTIDE ACETATE
     Indication: DIARRHOEA
     Dosage: 20 MILLIGRAM, EVERY 28 DAYS
     Route: 030
     Dates: start: 20180104
  8. ACETAMINOPHEN. [Concomitant]
     Active Substance: ACETAMINOPHEN
     Indication: ARTHRITIS BACTERIAL
     Dosage: 325 MILLIGRAM, PRN
     Route: 048
     Dates: start: 20180305, end: 20190220
  9. TEDUGLUTIDE [Suspect]
     Active Substance: TEDUGLUTIDE
     Indication: SHORT-BOWEL SYNDROME
     Dosage: 2.4 UNKNOWN, 1X/DAY:QD
     Route: 058
     Dates: start: 20140626, end: 20140901
  10. PREDNISOLONE ACETATE. [Concomitant]
     Active Substance: PREDNISOLONE ACETATE
     Indication: CANDIDA ENDOPHTHALMITIS
     Dosage: 1 MILLILITER, QID
     Route: 047

REACTIONS (4)
  - Septic shock [Recovered/Resolved]
  - Systemic candida [Recovered/Resolved]
  - Escherichia bacteraemia [Recovered/Resolved]
  - Enterococcal infection [Recovered/Resolved]

NARRATIVE: CASE EVENT DATE: 20150825
